FAERS Safety Report 23240068 (Version 2)
Quarter: 2023Q4

REPORT INFORMATION
  Report Type: Spontaneous
  Country: US (occurrence: US)
  Receive Date: 20231129
  Receipt Date: 20231229
  Transmission Date: 20240109
  Serious: No
  Sender: FDA-Public Use
  Company Number: US-PFIZER INC-PV202300144903

PATIENT
  Age: 76 Year
  Sex: Male
  Weight: 61.678 kg

DRUGS (4)
  1. RETACRIT [Suspect]
     Active Substance: EPOETIN ALFA-EPBX
     Indication: Nephrogenic anaemia
     Dosage: Q2 WEEKS
     Route: 058
  2. RETACRIT [Suspect]
     Active Substance: EPOETIN ALFA-EPBX
     Indication: Bladder cancer
     Dosage: 20000 IU (Q 14)
     Route: 058
  3. RETACRIT [Suspect]
     Active Substance: EPOETIN ALFA-EPBX
     Indication: Autoimmune haemolytic anaemia
     Dosage: 20000 IU (INJECT 20,000 UNITS (2 ML) SQ (SUBCUTANEOUS) Q (EVERY) 14 D (DAY))
     Route: 058
  4. RETACRIT [Suspect]
     Active Substance: EPOETIN ALFA-EPBX
     Indication: Colon cancer

REACTIONS (11)
  - Red blood cell count decreased [Unknown]
  - Haemoglobin decreased [Unknown]
  - Haematocrit decreased [Unknown]
  - Blood creatinine increased [Unknown]
  - Blood thyroid stimulating hormone decreased [Unknown]
  - pH urine increased [Unknown]
  - Urobilinogen urine decreased [Unknown]
  - Fatigue [Recovered/Resolved]
  - Dyspnoea exertional [Recovering/Resolving]
  - Eyelid cyst [Unknown]
  - Off label use [Unknown]
